FAERS Safety Report 14222147 (Version 1)
Quarter: 2017Q4

REPORT INFORMATION
  Report Type: Report from Study
  Country: US (occurrence: US)
  Receive Date: 20171124
  Receipt Date: 20171124
  Transmission Date: 20180321
  Serious: Yes (Hospitalization)
  Sender: FDA-Public Use
  Company Number: US-ROCHE-2008883

PATIENT
  Sex: Male

DRUGS (11)
  1. METOPROLOL. [Concomitant]
     Active Substance: METOPROLOL
  2. ATORVASTATIN [Concomitant]
     Active Substance: ATORVASTATIN
     Route: 048
     Dates: start: 20171013
  3. BUSPIRONE [Concomitant]
     Active Substance: BUSPIRONE HYDROCHLORIDE
     Route: 048
     Dates: start: 20171013
  4. NOVOLIN [Concomitant]
     Active Substance: INSULIN HUMAN
     Route: 058
     Dates: start: 20171013
  5. LOSARTAN. [Concomitant]
     Active Substance: LOSARTAN
     Route: 048
     Dates: start: 20171014
  6. LEVEMIR [Concomitant]
     Active Substance: INSULIN DETEMIR
     Route: 058
     Dates: start: 20171013
  7. PAROXETINE. [Concomitant]
     Active Substance: PAROXETINE
     Route: 048
     Dates: start: 20171014
  8. CLINDAMYCIN. [Concomitant]
     Active Substance: CLINDAMYCIN
     Route: 048
  9. ASPIRIN. [Concomitant]
     Active Substance: ASPIRIN
     Dosage: EVERY EVENING
     Route: 048
     Dates: start: 20171013
  10. OBINUTUZUMAB. [Suspect]
     Active Substance: OBINUTUZUMAB
     Indication: NON-HODGKIN^S LYMPHOMA UNSPECIFIED HISTOLOGY INDOLENT
     Dosage: ON DAY 1, 2, 8, AND 15 OF CYCLE ONE AND ON DAY 1 OF EACH SUBSEQUENT CYCLE UP TO 6 CYCLES. OBINUTUZUM
     Route: 042
  11. LENALIDOMIDE [Suspect]
     Active Substance: LENALIDOMIDE
     Indication: NON-HODGKIN^S LYMPHOMA UNSPECIFIED HISTOLOGY INDOLENT
     Dosage: STARTING DOSE OF 10 MG TAKEN ORALLY IN THE MORNING EACH DAY ON DAYS 2 - 22, FOLLOWED BY 6 DAYS OF NO
     Route: 048

REACTIONS (2)
  - Infection [Unknown]
  - Infestation [Unknown]

NARRATIVE: CASE EVENT DATE: 20171012
